FAERS Safety Report 7829723-9 (Version None)
Quarter: 2011Q4

REPORT INFORMATION
  Report Type: 
  Country: None (occurrence: None)
  Receive Date: 20111021
  Receipt Date: 20111010
  Transmission Date: 20120403
  Serious: Yes (Death)
  Sender: FDA-Public Use
  Company Number: US-RANBAXY-2011US-48942

PATIENT
  Age: 22 Month
  Sex: Male
  Weight: 12 kg

DRUGS (1)
  1. ACETAMINOPHEN [Suspect]
     Indication: VIRAL INFECTION
     Dosage: 1.5 TEASPOONFULS EVERY 4 HOURS FOR 26 HOURS
     Route: 048

REACTIONS (3)
  - VOMITING [None]
  - MEDICATION ERROR [None]
  - LETHARGY [None]
